FAERS Safety Report 22964926 (Version 3)
Quarter: 2023Q4

REPORT INFORMATION
  Report Type: Report from Study
  Country: JP (occurrence: JP)
  Receive Date: 20230921
  Receipt Date: 20231130
  Transmission Date: 20240110
  Serious: Yes (Hospitalization, Other)
  Sender: FDA-Public Use
  Company Number: JP-ASTELLAS-2023JP009137

PATIENT
  Age: 68 Year
  Sex: Male
  Weight: 60.5 kg

DRUGS (16)
  1. ENFORTUMAB VEDOTIN [Suspect]
     Active Substance: ENFORTUMAB VEDOTIN
     Indication: Transitional cell carcinoma
     Dosage: 1.25 MG/KG, ONCE-WEEKLY DOSING FOR 3 CONSECUTIVE WEEKS, WITHDRAWAL FOR WEEK 4
     Route: 041
     Dates: start: 20220329, end: 20220329
  2. ENFORTUMAB VEDOTIN [Suspect]
     Active Substance: ENFORTUMAB VEDOTIN
     Dosage: 1.25 MG/KG, ONCE-WEEKLY DOSING FOR 3 CONSECUTIVE WEEKS, WITHDRAWAL FOR WEEK 4
     Route: 041
     Dates: start: 20220412, end: 20220412
  3. ENFORTUMAB VEDOTIN [Suspect]
     Active Substance: ENFORTUMAB VEDOTIN
     Dosage: 1.25 MG/KG, ONCE-WEEKLY DOSING FOR 3 CONSECUTIVE WEEKS, WITHDRAWAL FOR WEEK 4
     Route: 041
     Dates: start: 20220426, end: 20220426
  4. ENFORTUMAB VEDOTIN [Suspect]
     Active Substance: ENFORTUMAB VEDOTIN
     Dosage: 1.25 MG/KG, ONCE-WEEKLY DOSING FOR 3 CONSECUTIVE WEEKS, WITHDRAWAL FOR WEEK 4
     Route: 041
     Dates: start: 20220510, end: 20220510
  5. ENFORTUMAB VEDOTIN [Suspect]
     Active Substance: ENFORTUMAB VEDOTIN
     Dosage: 1.25 MG/KG, ONCE-WEEKLY DOSING FOR 3 CONSECUTIVE WEEKS, WITHDRAWAL FOR WEEK 4
     Route: 041
     Dates: start: 20220524, end: 20220607
  6. ENFORTUMAB VEDOTIN [Suspect]
     Active Substance: ENFORTUMAB VEDOTIN
     Route: 041
     Dates: start: 20220628, end: 20220628
  7. ENFORTUMAB VEDOTIN [Suspect]
     Active Substance: ENFORTUMAB VEDOTIN
     Route: 041
     Dates: start: 20220802, end: 20220802
  8. ENFORTUMAB VEDOTIN [Suspect]
     Active Substance: ENFORTUMAB VEDOTIN
     Route: 041
     Dates: start: 20220906, end: 20220913
  9. ENFORTUMAB VEDOTIN [Suspect]
     Active Substance: ENFORTUMAB VEDOTIN
     Route: 041
     Dates: start: 20221004, end: 20221011
  10. ENFORTUMAB VEDOTIN [Suspect]
     Active Substance: ENFORTUMAB VEDOTIN
     Route: 041
     Dates: start: 20221101, end: 20221108
  11. ENFORTUMAB VEDOTIN [Suspect]
     Active Substance: ENFORTUMAB VEDOTIN
     Route: 041
     Dates: start: 20221206, end: 20221206
  12. ENFORTUMAB VEDOTIN [Suspect]
     Active Substance: ENFORTUMAB VEDOTIN
     Route: 041
     Dates: start: 20221220, end: 20221220
  13. PEMBROLIZUMAB [Concomitant]
     Active Substance: PEMBROLIZUMAB
     Indication: Transitional cell carcinoma
     Dosage: UNK UNK, UNKNOWN FREQ.
     Route: 065
     Dates: start: 20210622, end: 20220303
  14. ACETAMINOPHEN [Concomitant]
     Active Substance: ACETAMINOPHEN
     Indication: Pyrexia
     Dosage: 400 MG, ON FEVER
     Route: 048
     Dates: start: 20220401, end: 20220402
  15. PIPERACILLIN SODIUM\TAZOBACTAM SODIUM [Concomitant]
     Active Substance: PIPERACILLIN SODIUM\TAZOBACTAM SODIUM
     Indication: Pyrexia
     Route: 065
     Dates: start: 20220704, end: 20220714
  16. LEVOFLOXACIN HEMIHYDRATE [Concomitant]
     Active Substance: LEVOFLOXACIN
     Indication: Pyrexia
     Route: 048
     Dates: start: 20220715, end: 20220724

REACTIONS (10)
  - Pyrexia [Recovered/Resolved]
  - Pneumonia [Recovered/Resolved]
  - Pyrexia [Recovering/Resolving]
  - Hiccups [Recovered/Resolved]
  - Taste disorder [Recovered/Resolved]
  - Liver function test increased [Recovered/Resolved]
  - Bile duct stone [Recovered/Resolved]
  - Heat illness [Recovered/Resolved]
  - C-reactive protein increased [Recovered/Resolved]
  - Inappropriate schedule of product administration [Unknown]

NARRATIVE: CASE EVENT DATE: 20220401
